FAERS Safety Report 4455294-3 (Version None)
Quarter: 2004Q3

REPORT INFORMATION
  Report Type: 
  Country: None (occurrence: None)
  Receive Date: 20040917
  Receipt Date: 20040723
  Transmission Date: 20050211
  Serious: Yes (Hospitalization)
  Sender: FDA-Public Use
  Company Number: 2004040817

PATIENT
  Age: 26 Year
  Sex: Male

DRUGS (2)
  1. ZELDOX (CAPSULES) (ZIPRASIDONE) [Suspect]
     Indication: SCHIZOPHRENIA
     Dosage: 160 MG (80 MG, 2 IN 1 D), ORAL
     Route: 048
     Dates: start: 20040225, end: 20040402
  2. CLONAZEPAM [Concomitant]

REACTIONS (4)
  - AGGRESSION [None]
  - DRUG EFFECT DECREASED [None]
  - HALLUCINATION [None]
  - VOMITING [None]
